FAERS Safety Report 15930044 (Version 1)
Quarter: 2019Q1

REPORT INFORMATION
  Report Type: Spontaneous
  Country: US (occurrence: US)
  Receive Date: 20190115
  Receipt Date: 20190115
  Transmission Date: 20190417
  Serious: Yes (Death)
  Sender: FDA-Public Use
  Company Number: None

PATIENT
  Age: 64 Year
  Sex: Female

DRUGS (3)
  1. STIVARGA [Suspect]
     Active Substance: REGORAFENIB
     Indication: NEUTROPENIA
  2. STIVARGA [Suspect]
     Active Substance: REGORAFENIB
     Indication: NEUTROPENIA
     Route: 048
     Dates: start: 20180831, end: 20181114
  3. STIVARGA [Suspect]
     Active Substance: REGORAFENIB
     Indication: COLON CANCER
     Route: 048
     Dates: start: 20180831, end: 20181114

REACTIONS (1)
  - Death [None]

NARRATIVE: CASE EVENT DATE: 20181213
